FAERS Safety Report 6184505-1 (Version None)
Quarter: 2009Q2

REPORT INFORMATION
  Report Type: 
  Country: None (occurrence: None)
  Receive Date: 20090508
  Receipt Date: 20090428
  Transmission Date: 20091009
  Serious: Yes (Death, Life-Threatening)
  Sender: FDA-Public Use
  Company Number: JP-BAYER-200910754BYL

PATIENT
  Age: 66 Year
  Sex: Male
  Weight: 62 kg

DRUGS (7)
  1. FLUDARA [Suspect]
     Indication: ACUTE MYELOID LEUKAEMIA
     Dosage: AS USED: 25 MG/M2  UNIT DOSE: 50 MG
     Route: 042
     Dates: start: 20090109, end: 20090113
  2. BUSULFAN [Concomitant]
     Indication: ACUTE MYELOID LEUKAEMIA
     Dosage: AS USED: 3.2 MG/KG
     Route: 042
     Dates: start: 20090109, end: 20090111
  3. DEPAKENE [Concomitant]
     Indication: CONVULSION PROPHYLAXIS
     Dosage: TOTAL DAILY DOSE: 600 MG  UNIT DOSE: 200 MG
     Route: 048
     Dates: start: 20090108, end: 20090112
  4. CYLOCIDE [Concomitant]
     Indication: ACUTE MYELOID LEUKAEMIA
     Dosage: AS USED: 168 MG
     Route: 041
     Dates: start: 20090210, end: 20090211
  5. CONCENTRATED RED CELLS [Concomitant]
     Indication: PACKED RED BLOOD CELL TRANSFUSION
     Route: 042
     Dates: start: 20090127, end: 20090211
  6. PLATELETS [Concomitant]
     Indication: PLATELET TRANSFUSION
     Route: 042
     Dates: start: 20090119, end: 20090212
  7. FRESH FROZEN PLASMA [Concomitant]
     Indication: BLOOD PRODUCT TRANSFUSION
     Route: 042
     Dates: start: 20090209, end: 20090212

REACTIONS (2)
  - ACUTE MYELOID LEUKAEMIA [None]
  - CEREBELLAR HAEMORRHAGE [None]
